FAERS Safety Report 9233401 (Version 2)
Quarter: 2013Q2

REPORT INFORMATION
  Report Type: Report from Study
  Country: US (occurrence: US)
  Receive Date: 20130416
  Receipt Date: 20130523
  Transmission Date: 20140414
  Serious: Yes (Other)
  Sender: FDA-Public Use
  Company Number: US-BAYER-2013-035405

PATIENT
  Age: 58 Year
  Sex: Female
  Weight: 60.32 kg

DRUGS (20)
  1. STIVARGA [Suspect]
     Indication: COLON CANCER
     Dosage: 160 MG, QD  (DAILY FOR 21 DAYS, OFF FOR 7)
     Route: 048
     Dates: start: 20130126, end: 20130128
  2. STIVARGA [Suspect]
     Indication: COLON CANCER
     Dosage: UNK
     Dates: start: 20130202, end: 20130205
  3. STIVARGA [Suspect]
     Indication: COLON CANCER
     Dosage: UNK
     Dates: start: 20130107
  4. FOLFIRI [Concomitant]
  5. AVASTIN [Concomitant]
  6. FOLFOX-4 [Concomitant]
  7. ADVAIR [Concomitant]
  8. CALCIUM D [Concomitant]
  9. ALBUTEROL [Concomitant]
  10. DIFLUCAN [Concomitant]
     Dosage: 200 MG, UNK
  11. FENTANYL [Concomitant]
     Dosage: UNK
     Route: 062
  12. IMODIUM ADVANCED [Concomitant]
  13. LOMOTIL [ATROPINE SULFATE,DIPHENOXYLATE HYDROCHLORIDE] [Concomitant]
  14. MEGACE [Concomitant]
     Dosage: 40 UNK, UNK
     Route: 048
  15. PERCOCET [Concomitant]
  16. POTASSIUM CHLORIDE [Concomitant]
     Dosage: 10 MEQ, UNK
  17. SINGULAIR [Concomitant]
     Dosage: 10 MG, UNK
  18. SYNTHROID [Concomitant]
  19. XYZAL [Concomitant]
  20. ZOFRAN [Concomitant]
     Dosage: 8 MG, UNK

REACTIONS (3)
  - Optic neuropathy [None]
  - Blindness [Not Recovered/Not Resolved]
  - Hallucination [Not Recovered/Not Resolved]
